FAERS Safety Report 5186256-9 (Version None)
Quarter: 2006Q4

REPORT INFORMATION
  Report Type: 
  Country: None (occurrence: None)
  Receive Date: 20061212
  Receipt Date: 20061107
  Transmission Date: 20070319
  Serious: Yes (Other)
  Sender: FDA-Public Use
  Company Number: 2006BH013812

PATIENT
  Age: 28 Year
  Sex: Female

DRUGS (1)
  1. GAMMAGARD S/D [Suspect]
     Indication: IMMUNODEFICIENCY COMMON VARIABLE
     Dosage: IV
     Route: 042
     Dates: start: 19980101, end: 19980101

REACTIONS (7)
  - ANAPHYLACTIC SHOCK [None]
  - CARDIOGENIC SHOCK [None]
  - DISEASE RECURRENCE [None]
  - INFECTION [None]
  - LYMPHOPENIA [None]
  - MENINGITIS ASEPTIC [None]
  - NECROTISING ULCERATIVE GINGIVOSTOMATITIS [None]
